FAERS Safety Report 13663949 (Version 1)
Quarter: 2017Q2

REPORT INFORMATION
  Report Type: Spontaneous
  Country: US (occurrence: US)
  Receive Date: 20170618
  Receipt Date: 20170618
  Transmission Date: 20170830
  Serious: Yes (Life-Threatening, Hospitalization)
  Sender: FDA-Public Use
  Company Number: None

PATIENT
  Age: 64 Year
  Sex: Female
  Weight: 69.75 kg

DRUGS (2)
  1. LOSARTAN. [Concomitant]
     Active Substance: LOSARTAN
  2. CLINDOMYCIN HCL [Suspect]
     Active Substance: CLINDAMYCIN HYDROCHLORIDE
     Indication: ENDODONTIC PROCEDURE
     Dosage: ?          QUANTITY:1 CAPSULE(S);?
     Route: 048
     Dates: start: 20170611, end: 20170611

REACTIONS (10)
  - Swelling [None]
  - Pruritus [None]
  - Rash [None]
  - Vision blurred [None]
  - Pyrexia [None]
  - Nausea [None]
  - Skin fissures [None]
  - Headache [None]
  - Gait disturbance [None]
  - Abdominal pain [None]

NARRATIVE: CASE EVENT DATE: 20170611
